FAERS Safety Report 10917123 (Version 4)
Quarter: 2015Q4

REPORT INFORMATION
  Report Type: Report from Study
  Country: JP (occurrence: JP)
  Receive Date: 20150316
  Receipt Date: 20151014
  Transmission Date: 20160304
  Serious: Yes (Hospitalization)
  Sender: FDA-Public Use
  Company Number: JP-TAKEDA-2015TJP003613

PATIENT
  Age: 35 Year
  Sex: Male
  Weight: 51.5 kg

DRUGS (18)
  1. MLN0002 [Suspect]
     Active Substance: VEDOLIZUMAB
     Indication: CROHN^S DISEASE
     Dosage: 300 MG, UNK
     Route: 041
     Dates: start: 20141015, end: 20141015
  2. MLN0002 [Suspect]
     Active Substance: VEDOLIZUMAB
     Dosage: 300 MG, UNK
     Route: 041
     Dates: start: 20141029, end: 20141029
  3. PLACEBO [Suspect]
     Active Substance: UNSPECIFIED INGREDIENT
     Dosage: PLACEBO
     Route: 041
     Dates: start: 20140917, end: 20140917
  4. ELENTAL [Concomitant]
     Active Substance: AMINO ACIDS\CARBOHYDRATES\MINERALS\SOYBEAN OIL\VITAMINS
     Indication: NUTRITIONAL SUPPLEMENTATION
     Dosage: 80 G, QD
     Route: 048
     Dates: end: 20150303
  5. ELENTAL [Concomitant]
     Active Substance: AMINO ACIDS\CARBOHYDRATES\MINERALS\SOYBEAN OIL\VITAMINS
     Dosage: UNK
     Route: 048
     Dates: start: 20150311, end: 20150318
  6. ELENTAL [Concomitant]
     Active Substance: AMINO ACIDS\CARBOHYDRATES\MINERALS\SOYBEAN OIL\VITAMINS
     Dosage: 240 G, UNK
     Route: 048
     Dates: start: 20150702
  7. PLACEBO [Suspect]
     Active Substance: UNSPECIFIED INGREDIENT
     Dosage: PLACEBO
     Route: 041
     Dates: start: 20140820, end: 20140820
  8. PENTASA [Concomitant]
     Active Substance: MESALAMINE
     Indication: CROHN^S DISEASE
     Dosage: 750 MG, TID
     Route: 048
  9. MLN0002 [Suspect]
     Active Substance: VEDOLIZUMAB
     Dosage: 300 MG, Q8WEEKS
     Route: 041
     Dates: start: 20141126, end: 20141126
  10. MLN0002 [Suspect]
     Active Substance: VEDOLIZUMAB
     Dosage: 300 MG, Q8WEEKS
     Route: 041
     Dates: start: 20150513
  11. PARIET [Concomitant]
     Active Substance: RABEPRAZOLE SODIUM
     Indication: CROHN^S DISEASE
     Dosage: 10 MG, QD
     Route: 048
  12. MLN0002 [Suspect]
     Active Substance: VEDOLIZUMAB
     Dosage: 300 MG, Q8WEEKS
     Route: 041
     Dates: start: 20150319, end: 20150319
  13. ELENTAL [Concomitant]
     Active Substance: AMINO ACIDS\CARBOHYDRATES\MINERALS\SOYBEAN OIL\VITAMINS
     Dosage: UNK
     Route: 048
     Dates: start: 20150322, end: 20150621
  14. BIO-THREE [Concomitant]
     Active Substance: HERBALS
     Indication: CROHN^S DISEASE
     Dosage: 1 G, TID
     Route: 048
  15. PROCTOSEDYL [Concomitant]
     Active Substance: DIBUCAINE HYDROCHLORIDE\HYDROCORTISONE
     Indication: CROHN^S DISEASE
     Dosage: 2 G, QD
     Route: 062
     Dates: start: 20150218
  16. LOXOPROFEN EMEC [Concomitant]
     Active Substance: LOXOPROFEN
     Indication: CROHN^S DISEASE
     Dosage: 60 MG, QD
     Route: 048
     Dates: start: 20141101
  17. PLACEBO [Suspect]
     Active Substance: UNSPECIFIED INGREDIENT
     Indication: CROHN^S DISEASE
     Dosage: PLACEBO
     Route: 041
     Dates: start: 20140807, end: 20140807
  18. MLN0002 [Suspect]
     Active Substance: VEDOLIZUMAB
     Dosage: 300 MG, Q8WEEKS
     Route: 041
     Dates: start: 20150121, end: 20150121

REACTIONS (1)
  - Perirectal abscess [Recovering/Resolving]

NARRATIVE: CASE EVENT DATE: 20150302
